FAERS Safety Report 6256805-8 (Version None)
Quarter: 2009Q3

REPORT INFORMATION
  Report Type: 
  Country: None (occurrence: None)
  Receive Date: 20090706
  Receipt Date: 20090623
  Transmission Date: 20100115
  Serious: Yes (Other)
  Sender: FDA-Public Use
  Company Number: PHEH2007US12139

PATIENT
  Sex: Male

DRUGS (5)
  1. AREDIA [Suspect]
  2. ZOMETA [Suspect]
     Dosage: MONTHLY
     Dates: end: 20060101
  3. CHEMOTHERAPEUTICS NOS [Concomitant]
  4. THALIDOMIDE [Concomitant]
  5. STEROIDS NOS [Concomitant]

REACTIONS (13)
  - ANXIETY [None]
  - BONE DISORDER [None]
  - CARDIOMEGALY [None]
  - DEFORMITY [None]
  - DENTAL OPERATION [None]
  - DISABILITY [None]
  - DYSPNOEA [None]
  - EMOTIONAL DISTRESS [None]
  - INFECTION [None]
  - OSTEONECROSIS [None]
  - PAIN [None]
  - SPINAL OSTEOARTHRITIS [None]
  - TOOTH EXTRACTION [None]
